FAERS Safety Report 6502416-6 (Version None)
Quarter: 2009Q4

REPORT INFORMATION
  Report Type: 
  Country: None (occurrence: None)
  Receive Date: 20091216
  Receipt Date: 20091116
  Transmission Date: 20100525
  Serious: No
  Sender: FDA-Public Use
  Company Number: US-ABBOTT-09P-163-0609606-00

PATIENT
  Sex: Female

DRUGS (6)
  1. TRILIPIX [Suspect]
     Indication: BLOOD TRIGLYCERIDES INCREASED
     Dates: start: 20090601, end: 20090901
  2. TRILIPIX [Suspect]
     Dates: start: 20091001
  3. LOMOTIL [Concomitant]
     Indication: CROHN'S DISEASE
  4. APRISO [Concomitant]
     Indication: CROHN'S DISEASE
  5. COUMADIN [Concomitant]
     Indication: ANTICOAGULANT THERAPY
     Dates: start: 20090101
  6. METOPROLOL TARTRATE [Concomitant]
     Indication: CARDIAC FLUTTER
     Dates: start: 20091001

REACTIONS (2)
  - ABDOMINAL DISCOMFORT [None]
  - DIARRHOEA [None]
